FAERS Safety Report 10151318 (Version 1)
Quarter: 2014Q2

REPORT INFORMATION
  Report Type: Spontaneous
  Country: US (occurrence: US)
  Receive Date: 20140502
  Receipt Date: 20140502
  Transmission Date: 20141212
  Serious: No
  Sender: FDA-Public Use
  Company Number: US-ASTRAZENECA-2013SE70818

PATIENT
  Sex: Male

DRUGS (2)
  1. PRILOSEC OTC [Suspect]
     Indication: DYSPEPSIA
     Dosage: 1 TABLET, 2 /DAY
     Route: 048
  2. PRILOSEC OTC [Suspect]
     Indication: GASTROOESOPHAGEAL REFLUX DISEASE
     Dosage: 1 TABLET, 2 /DAY
     Route: 048

REACTIONS (8)
  - Hypotension [Unknown]
  - Bradycardia [Unknown]
  - Blood pressure decreased [Unknown]
  - Malaise [Unknown]
  - Abdominal pain upper [Unknown]
  - Nausea [Unknown]
  - Drug effect decreased [Unknown]
  - Inappropriate schedule of drug administration [Unknown]
